FAERS Safety Report 15277830 (Version 1)
Quarter: 2018Q3

REPORT INFORMATION
  Report Type: Spontaneous
  Country: US (occurrence: US)
  Receive Date: 20180814
  Receipt Date: 20180814
  Transmission Date: 20181010
  Serious: Yes (Hospitalization)
  Sender: FDA-Public Use
  Company Number: US-TEVA-2018-US-943454

PATIENT
  Age: 62 Year
  Sex: Female

DRUGS (1)
  1. EPOPROSTENOL. [Suspect]
     Active Substance: EPOPROSTENOL
     Indication: PULMONARY ARTERIAL HYPERTENSION
     Route: 042

REACTIONS (4)
  - Mental status changes [Recovered/Resolved]
  - Hypophysitis [Recovered/Resolved]
  - Hypopituitarism [Recovered/Resolved]
  - Pituitary hyperplasia [Recovered/Resolved]
